FAERS Safety Report 6366620-2 (Version None)
Quarter: 2009Q3

REPORT INFORMATION
  Report Type: 
  Country: None (occurrence: None)
  Receive Date: 20090921
  Receipt Date: 20090910
  Transmission Date: 20100115
  Serious: Yes (Hospitalization, Other)
  Sender: FDA-Public Use
  Company Number: PHHY2009AR38926

PATIENT
  Sex: Female

DRUGS (3)
  1. ACLASTA [Suspect]
     Indication: OSTEOPOROSIS
     Dosage: UNK
     Route: 042
     Dates: start: 20080901
  2. ENALAPRIL MALEATE [Concomitant]
     Dosage: 10 MG, UNK
  3. CARVEDILOL [Concomitant]
     Dosage: 50 MG, UNK

REACTIONS (4)
  - BONE OPERATION [None]
  - FALL [None]
  - FEMUR FRACTURE [None]
  - WALKING AID USER [None]
